FAERS Safety Report 6674300-9 (Version None)
Quarter: 2010Q2

REPORT INFORMATION
  Report Type: 
  Country: None (occurrence: None)
  Receive Date: 20100409
  Receipt Date: 20100329
  Transmission Date: 20101027
  Serious: Yes (Hospitalization, Other)
  Sender: FDA-Public Use
  Company Number: JP-PFIZER INC-2010041740

PATIENT
  Sex: Male
  Weight: 28.2 kg

DRUGS (12)
  1. SOMATROPIN [Suspect]
     Indication: DWARFISM
     Dosage: 0.8 MG, 1X/DAY
     Route: 058
     Dates: start: 20030806, end: 20041114
  2. SOMATROPIN [Suspect]
     Dosage: 4.8 MG/6 TIMES X/WEEK
     Dates: start: 20041115, end: 20051211
  3. SOMATROPIN [Suspect]
     Dosage: 5.6 MG/6 TIMES X/WEEK
     Dates: start: 20051212, end: 20071128
  4. SOMATROPIN [Suspect]
     Dosage: 7.0 MG/ 7 TIMES X/WEEK
     Dates: start: 20071129
  5. SOMATROPIN [Suspect]
     Dosage: 8.4 MG/ 7 TIMES X/WEEK
     Dates: start: 20090507, end: 20090511
  6. THYRADIN S [Concomitant]
     Indication: BLOOD THYROID STIMULATING HORMONE DECREASED
     Dosage: 100 UG, 1X/DAY
     Route: 048
  7. THYRADIN S [Concomitant]
     Dosage: 125 UG, 1X/DAY
     Dates: start: 20070906
  8. CORTRIL [Concomitant]
     Indication: BLOOD CORTICOTROPHIN DECREASED
     Dosage: 15 MG, 1X/DAY
     Route: 048
  9. TESTOSTERONE ENANTATE [Concomitant]
     Indication: HYPOGONADISM
     Dosage: UNK
     Dates: start: 20071129
  10. PROFASI HP [Concomitant]
     Dosage: 500 IU, WEEKLY
     Route: 058
     Dates: start: 20090115, end: 20090311
  11. FOLLITROPIN ALFA [Concomitant]
     Dosage: 25 IU, WEEKLY
     Route: 058
     Dates: start: 20090115
  12. GONATROPIN [Concomitant]
     Dosage: 500 IU, WEEKLY
     Route: 058
     Dates: start: 20090312

REACTIONS (2)
  - CRANIOPHARYNGIOMA [None]
  - NEOPLASM RECURRENCE [None]
